FAERS Safety Report 11778173 (Version 2)
Quarter: 2015Q4

REPORT INFORMATION
  Report Type: Spontaneous
  Country: FR (occurrence: FR)
  Receive Date: 20151125
  Receipt Date: 20151210
  Transmission Date: 20160304
  Serious: Yes (Hospitalization)
  Sender: FDA-Public Use
  Company Number: FR-ABBVIE-15P-056-1504716-00

PATIENT
  Age: 45 Year

DRUGS (12)
  1. LYRICA [Suspect]
     Active Substance: PREGABALIN
     Indication: NEURALGIA
     Route: 048
     Dates: start: 20110101, end: 20151022
  2. MORPHINE [Suspect]
     Active Substance: MORPHINE
     Indication: PERIOPERATIVE ANALGESIA
     Route: 042
     Dates: start: 20151020, end: 20151020
  3. NEFOPAM [Suspect]
     Active Substance: NEFOPAM
     Indication: PERIOPERATIVE ANALGESIA
     Route: 042
     Dates: start: 20151020, end: 20151020
  4. PROFENID [Suspect]
     Active Substance: KETOPROFEN
     Indication: PERIOPERATIVE ANALGESIA
     Route: 042
     Dates: start: 20151020, end: 20151020
  5. KETAMINE [Suspect]
     Active Substance: KETAMINE
     Indication: GENERAL ANAESTHESIA
     Route: 042
     Dates: start: 20151020, end: 20151020
  6. SEVORANE [Suspect]
     Active Substance: SEVOFLURANE
     Indication: GENERAL ANAESTHESIA
     Route: 042
     Dates: start: 20151020, end: 20151020
  7. DIPRIVAN [Suspect]
     Active Substance: PROPOFOL
     Indication: GENERAL ANAESTHESIA
     Route: 042
     Dates: start: 20151020, end: 20151020
  8. SUFENTANIL [Suspect]
     Active Substance: SUFENTANIL
     Indication: PERIOPERATIVE ANALGESIA
     Route: 042
     Dates: start: 20151020, end: 20151020
  9. CEFAZOLINE [Suspect]
     Active Substance: CEFAZOLIN SODIUM
     Indication: PRODUCT USED FOR UNKNOWN INDICATION
     Route: 042
     Dates: start: 20151020, end: 20151020
  10. NEURONTIN [Suspect]
     Active Substance: GABAPENTIN
     Indication: PERIOPERATIVE ANALGESIA
     Route: 048
     Dates: start: 20151020, end: 20151020
  11. PERFALGAN [Suspect]
     Active Substance: ACETAMINOPHEN
     Indication: POSTOPERATIVE ANALGESIA
     Route: 042
     Dates: start: 20151020, end: 20151020
  12. TRACRIUM [Suspect]
     Active Substance: ATRACURIUM BESYLATE
     Indication: GENERAL ANAESTHESIA
     Route: 042
     Dates: start: 20151020, end: 20151020

REACTIONS (4)
  - Pancreatitis acute [Recovering/Resolving]
  - Abdominal pain [Recovering/Resolving]
  - Intestinal obstruction [Recovering/Resolving]
  - Lipase increased [Recovering/Resolving]

NARRATIVE: CASE EVENT DATE: 20151022
